FAERS Safety Report 8292064-2 (Version None)
Quarter: 2012Q2

REPORT INFORMATION
  Report Type: 
  Country: None (occurrence: None)
  Receive Date: 20120417
  Receipt Date: 20120410
  Transmission Date: 20120825
  Serious: Yes (Life-Threatening)
  Sender: FDA-Public Use
  Company Number: GB-GENZYME-MOZO-1000682

PATIENT
  Sex: Male
  Weight: 110 kg

DRUGS (1)
  1. MOZOBIL [Suspect]
     Indication: HAEMATOPOIETIC STEM CELL MOBILISATION
     Dosage: UNK
     Route: 058
     Dates: start: 20120215, end: 20120215

REACTIONS (1)
  - ANAPHYLACTIC REACTION [None]
